FAERS Safety Report 23221328 (Version 11)
Quarter: 2025Q3

REPORT INFORMATION
  Report Type: Report from Study
  Country: CA (occurrence: CA)
  Receive Date: 20231123
  Receipt Date: 20250924
  Transmission Date: 20251021
  Serious: Yes (Death, Hospitalization, Other)
  Sender: TAKEDA
  Company Number: CA-TAKEDA-2021TUS039764

PATIENT
  Age: 65 Year
  Sex: Male

DRUGS (9)
  1. LANADELUMAB [Suspect]
     Active Substance: LANADELUMAB
     Indication: Hereditary angioedema with C1 esterase inhibitor deficiency
     Dosage: UNK UNK, Q2WEEKS
     Dates: start: 20201014
  2. LANADELUMAB [Suspect]
     Active Substance: LANADELUMAB
     Dosage: UNK UNK, Q4WEEKS
  3. LANADELUMAB [Suspect]
     Active Substance: LANADELUMAB
     Dosage: 2 DOSAGE FORM, Q2WEEKS
  4. LANADELUMAB [Suspect]
     Active Substance: LANADELUMAB
     Dosage: 2 DOSAGE FORM, Q4WEEKS
  5. LANADELUMAB [Suspect]
     Active Substance: LANADELUMAB
     Dosage: UNK UNK, Q4WEEKS
  6. LANADELUMAB [Suspect]
     Active Substance: LANADELUMAB
     Dosage: 300 MILLIGRAM/2ML, Q4WEEKS
     Dates: end: 20250912
  7. BERINERT [Concomitant]
     Active Substance: HUMAN C1-ESTERASE INHIBITOR
  8. DANAZOL [Concomitant]
     Active Substance: DANAZOL
  9. FIRAZYR [Concomitant]
     Active Substance: ICATIBANT ACETATE

REACTIONS (22)
  - Lung disorder [Fatal]
  - Renal disorder [Fatal]
  - Haemoptysis [Fatal]
  - Vomiting [Fatal]
  - General physical health deterioration [Fatal]
  - Coma [Fatal]
  - Illness [Unknown]
  - Blood iron decreased [Unknown]
  - Malaise [Unknown]
  - Haematemesis [Not Recovered/Not Resolved]
  - Aspiration [Not Recovered/Not Resolved]
  - Confusional state [Not Recovered/Not Resolved]
  - Fall [Not Recovered/Not Resolved]
  - Gait disturbance [Not Recovered/Not Resolved]
  - Abdominal pain upper [Recovering/Resolving]
  - Blood pressure increased [Recovering/Resolving]
  - Blood glucose increased [Recovering/Resolving]
  - Hereditary angioedema [Unknown]
  - Blood pressure fluctuation [Unknown]
  - Product dose omission issue [Unknown]
  - Product use in unapproved indication [Unknown]
  - Inappropriate schedule of product administration [Unknown]

NARRATIVE: CASE EVENT DATE: 20201014
